FAERS Safety Report 6122466-1 (Version None)
Quarter: 2009Q1

REPORT INFORMATION
  Report Type: 
  Country: None (occurrence: None)
  Receive Date: 20090318
  Receipt Date: 20081202
  Transmission Date: 20090719
  Serious: No
  Sender: FDA-Public Use
  Company Number: US-ASTRAZENECA-2008UW26866

PATIENT
  Age: 34 Year
  Sex: Female

DRUGS (4)
  1. SYMBICORT [Suspect]
     Indication: INFLAMMATION
     Dosage: 80/4.5 MCG 120 INHALATIONS, 2 PUFFS TWO TIMES A DAY
     Route: 055
     Dates: start: 20081202
  2. SYMBICORT [Suspect]
     Indication: RESPIRATORY TRACT CONGESTION
     Dosage: 80/4.5 MCG 120 INHALATIONS, 2 PUFFS TWO TIMES A DAY
     Route: 055
     Dates: start: 20081202
  3. XOPENEX [Concomitant]
  4. MUCINEX [Concomitant]

REACTIONS (1)
  - FEELING JITTERY [None]
